FAERS Safety Report 19815508 (Version 1)
Quarter: 2021Q3

REPORT INFORMATION
  Report Type: Spontaneous
  Country: US (occurrence: US)
  Receive Date: 20210910
  Receipt Date: 20210910
  Transmission Date: 20211014
  Serious: No
  Sender: FDA-Public Use
  Company Number: US-PFIZER INC-2021816699

PATIENT
  Age: 34 Year
  Sex: Female

DRUGS (5)
  1. PLAQUENIL [Concomitant]
     Active Substance: HYDROXYCHLOROQUINE SULFATE
     Dosage: 200 MG
  2. XELJANZ XR [Suspect]
     Active Substance: TOFACITINIB CITRATE
     Indication: RHEUMATOID ARTHRITIS
     Dosage: 11 MG,  ONCE DAILY
     Route: 048
     Dates: start: 20210625
  3. CELEBREX [Concomitant]
     Active Substance: CELECOXIB
     Dosage: 200 MG
  4. ZYRTEC [Concomitant]
     Active Substance: CETIRIZINE HYDROCHLORIDE
     Dosage: 10 MG
  5. MULTIVITAMINS;MINERALS [Concomitant]
     Active Substance: MINERALS\VITAMINS

REACTIONS (2)
  - Eczema [Unknown]
  - Product dose omission issue [Unknown]
